FAERS Safety Report 20564679 (Version 1)
Quarter: 2022Q1

REPORT INFORMATION
  Report Type: Spontaneous
  Country: US (occurrence: US)
  Receive Date: 20220308
  Receipt Date: 20220308
  Transmission Date: 20220424
  Serious: No
  Sender: FDA-Public Use
  Company Number: US-009507513-2202USA005345

PATIENT
  Sex: Male

DRUGS (5)
  1. CANCIDAS [Suspect]
     Active Substance: CASPOFUNGIN ACETATE
     Indication: Coccidioidomycosis
     Dosage: 70 MILLIGRAM/SQ. METER, ONCE (LOADING DOSE)
  2. CANCIDAS [Suspect]
     Active Substance: CASPOFUNGIN ACETATE
     Dosage: 50 MILLIGRAM/SQ. METER, DAILY
  3. AMPHOTERICIN B [Concomitant]
     Active Substance: AMPHOTERICIN B
     Indication: Coccidioidomycosis
     Dosage: 5 MILLIGRAM/KILOGRAM, ONCE DAILY
  4. VORICONAZOLE [Concomitant]
     Active Substance: VORICONAZOLE
     Indication: Coccidioidomycosis
     Dosage: 9 MILLIGRAM/KILOGRAM, EVERY 12 HOURS
  5. PREDNISOLONE [Concomitant]
     Active Substance: PREDNISOLONE
     Indication: Respiratory distress
     Dosage: UNK

REACTIONS (1)
  - Product use in unapproved indication [Unknown]
